FAERS Safety Report 4977341-2 (Version None)
Quarter: 2006Q2

REPORT INFORMATION
  Report Type: 
  Country: None (occurrence: None)
  Receive Date: 20060419
  Receipt Date: 20060104
  Transmission Date: 20061013
  Serious: Yes (Hospitalization)
  Sender: FDA-Public Use
  Company Number: US-MERCK-0601USA00528

PATIENT
  Age: 45 Year
  Sex: Male
  Weight: 120 kg

DRUGS (5)
  1. HYDROCODONE BITARTRATE [Concomitant]
     Route: 065
  2. WELLBUTRIN [Concomitant]
     Route: 065
     Dates: start: 20001101, end: 20030301
  3. AVELOX [Concomitant]
     Route: 065
  4. VIOXX [Suspect]
     Indication: ARTHRALGIA
     Route: 048
     Dates: start: 20000101, end: 20020901
  5. VIOXX [Suspect]
     Indication: SWELLING
     Route: 048
     Dates: start: 20000101, end: 20020901

REACTIONS (7)
  - ARTERIOSCLEROSIS [None]
  - BACK DISORDER [None]
  - BLOOD CHOLESTEROL INCREASED [None]
  - DEEP VEIN THROMBOSIS [None]
  - FEMORAL ARTERY OCCLUSION [None]
  - MUSCLE STRAIN [None]
  - MYOCARDIAL INFARCTION [None]
